FAERS Safety Report 15018288 (Version 3)
Quarter: 2019Q1

REPORT INFORMATION
  Report Type: Report from Study
  Country: IN (occurrence: IN)
  Receive Date: 20180615
  Receipt Date: 20190304
  Transmission Date: 20190417
  Serious: Yes (Death, Other)
  Sender: FDA-Public Use
  Company Number: PHHY2018IN021240

PATIENT
  Sex: Female

DRUGS (1)
  1. GLIVEC [Suspect]
     Active Substance: IMATINIB MESYLATE
     Indication: CHRONIC MYELOID LEUKAEMIA
     Dosage: 400 MG, UNK
     Route: 065

REACTIONS (6)
  - Facial paralysis [Unknown]
  - Death [Fatal]
  - CSF test abnormal [Unknown]
  - Philadelphia chromosome positive [Unknown]
  - Chronic myeloid leukaemia [Unknown]
  - Blast crisis in myelogenous leukaemia [Unknown]
